FAERS Safety Report 9298699 (Version 1)
Quarter: 2013Q2

REPORT INFORMATION
  Report Type: Spontaneous
  Country: CA (occurrence: CA)
  Receive Date: 20130520
  Receipt Date: 20130520
  Transmission Date: 20140414
  Serious: Yes (Death)
  Sender: FDA-Public Use
  Company Number: CA-JNJFOC-20130505126

PATIENT
  Sex: Female

DRUGS (4)
  1. RISPERIDONE [Suspect]
     Indication: BORDERLINE PERSONALITY DISORDER
     Route: 065
  2. RISPERIDONE [Suspect]
     Indication: ANTISOCIAL BEHAVIOUR
     Route: 065
  3. SEROQUEL [Suspect]
     Indication: BORDERLINE PERSONALITY DISORDER
     Route: 065
  4. SEROQUEL [Suspect]
     Indication: ANTISOCIAL BEHAVIOUR
     Route: 065

REACTIONS (2)
  - Completed suicide [Fatal]
  - Drug ineffective [Fatal]
